FAERS Safety Report 9443852 (Version 1)
Quarter: 2013Q3

REPORT INFORMATION
  Report Type: Spontaneous
  Country: US (occurrence: US)
  Receive Date: 20130806
  Receipt Date: 20130806
  Transmission Date: 20140515
  Serious: No
  Sender: FDA-Public Use
  Company Number: US-009507513-1308USA000720

PATIENT
  Sex: Male

DRUGS (12)
  1. INVANZ [Suspect]
     Indication: AORTITIS
     Dosage: 500 MG EVERY 24 HOURS
     Route: 042
  2. JANUVIA [Concomitant]
     Dosage: 500 MG DAILY
     Route: 048
  3. TOPROL XL TABLETS [Concomitant]
     Dosage: 50 MG DAILY
     Route: 048
  4. LIPITOR [Concomitant]
     Dosage: 40 MG, HS
  5. ACTOS [Concomitant]
     Dosage: 30 MG DAILY
  6. ASPIRIN [Concomitant]
     Dosage: 81 MG DAILY
  7. OMEGA-3 MARINE TRIGLYCERIDES [Concomitant]
  8. COLACE [Concomitant]
     Dosage: 100 MG, BID
  9. PRINIVIL [Concomitant]
     Dosage: 5 MG DAILY
     Route: 048
  10. NORVASC [Concomitant]
     Dosage: 2.5 MG DAILY
  11. NORCO [Concomitant]
     Dosage: 325 ONE TO TABLETS AS NEEDED EVERY THREE TO FOUR HOURS
  12. SOMA [Concomitant]
     Dosage: 350 MG EVERY 6 TO 8 HOURS AS NEEDED

REACTIONS (1)
  - Feeling cold [Not Recovered/Not Resolved]
